FAERS Safety Report 19705240 (Version 4)
Quarter: 2022Q1

REPORT INFORMATION
  Report Type: Report from Study
  Country: US (occurrence: US)
  Receive Date: 20210816
  Receipt Date: 20220315
  Transmission Date: 20220423
  Serious: Yes (Hospitalization, Other)
  Sender: FDA-Public Use
  Company Number: NVSC2021US179785

PATIENT
  Sex: Male

DRUGS (2)
  1. COSENTYX [Suspect]
     Active Substance: SECUKINUMAB
     Indication: Ankylosing spondylitis
     Dosage: 150 MG, QMO, BENEATH THE SKIN, USUALLY VIA INJECTION
     Route: 058
     Dates: start: 2021
  2. COSENTYX [Suspect]
     Active Substance: SECUKINUMAB
     Dosage: UNK UNK, QMO
     Route: 058
     Dates: start: 2021

REACTIONS (8)
  - Gastritis [Unknown]
  - Epstein-Barr virus infection reactivation [Unknown]
  - SARS-CoV-2 test positive [Unknown]
  - Respiratory tract irritation [Unknown]
  - Headache [Unknown]
  - Oropharyngeal pain [Unknown]
  - Dry eye [Unknown]
  - Insomnia [Unknown]
